FAERS Safety Report 10334002 (Version 2)
Quarter: 2014Q3

REPORT INFORMATION
  Report Type: Spontaneous
  Country: US (occurrence: US)
  Receive Date: 20140723
  Receipt Date: 20140723
  Transmission Date: 20150326
  Serious: No
  Sender: FDA-Public Use
  Company Number: US-UNITED THERAPEUTICS-UTC-047065

PATIENT
  Sex: Female

DRUGS (2)
  1. REMODULIN [Suspect]
     Active Substance: TREPROSTINIL
     Dosage: 0.115 UG/KG/MIN
     Route: 041
     Dates: start: 20140305
  2. ADCIRCA [Concomitant]
     Active Substance: TADALAFIL

REACTIONS (3)
  - Thrombosis in device [Unknown]
  - Drug dose omission [Unknown]
  - Device dislocation [Unknown]

NARRATIVE: CASE EVENT DATE: 2014
